FAERS Safety Report 9727544 (Version 3)
Quarter: 2014Q2

REPORT INFORMATION
  Report Type: Report from Study
  Country: US (occurrence: US)
  Receive Date: 20131203
  Receipt Date: 20140520
  Transmission Date: 20141212
  Serious: Yes (Other)
  Sender: FDA-Public Use
  Company Number: US-BAXTER-2013BAX047165

PATIENT
  Age: 55 Year
  Sex: Female
  Weight: 48.63 kg

DRUGS (23)
  1. GAMMAGARD LIQUID [Suspect]
     Indication: PRIMARY IMMUNODEFICIENCY SYNDROME
     Route: 058
     Dates: start: 201310, end: 201310
  2. GAMMAGARD LIQUID [Suspect]
     Route: 058
     Dates: start: 201311, end: 201312
  3. GAMMAGARD LIQUID [Suspect]
     Route: 058
     Dates: start: 201402, end: 201402
  4. GAMMAGARD LIQUID [Suspect]
     Route: 042
     Dates: start: 201403, end: 201403
  5. GAMMAGARD LIQUID [Suspect]
     Route: 042
     Dates: start: 201404, end: 201404
  6. PREDNISONE [Concomitant]
     Indication: PREMEDICATION
     Route: 048
     Dates: start: 20131203, end: 20131203
  7. PREDNISONE [Concomitant]
     Indication: ADVERSE EVENT
     Route: 048
     Dates: start: 201310, end: 201402
  8. PREDNISONE [Concomitant]
     Route: 048
     Dates: start: 201403, end: 20140505
  9. TYLENOL [Concomitant]
     Indication: HEADACHE
     Route: 048
  10. ZYBAN [Concomitant]
     Indication: EX-TOBACCO USER
     Route: 048
     Dates: end: 201310
  11. ALLEGRA [Concomitant]
     Indication: HYPERSENSITIVITY
     Route: 048
  12. PROGESTERON [Concomitant]
     Indication: MENOPAUSE
     Route: 048
  13. NEXIUM [Concomitant]
     Indication: PRODUCT USED FOR UNKNOWN INDICATION
     Route: 048
  14. NEXIUM [Concomitant]
     Route: 048
  15. HYOSCYAMINE [Concomitant]
     Indication: IRRITABLE BOWEL SYNDROME
     Route: 060
  16. BENADRYL [Concomitant]
     Indication: PREMEDICATION
     Route: 048
     Dates: start: 201310, end: 201402
  17. BENADRYL [Concomitant]
     Indication: INSOMNIA
  18. ZYRTEC [Concomitant]
     Indication: PREMEDICATION
     Route: 048
     Dates: start: 201403, end: 201404
  19. ESTRADIOL/NORETHINDRONE [Concomitant]
     Indication: HORMONE REPLACEMENT THERAPY
     Route: 048
  20. CYMBALTA [Concomitant]
     Indication: EX-TOBACCO USER
     Route: 048
  21. FLUCONAZOLE [Concomitant]
     Indication: FUNGAL INFECTION
     Route: 048
     Dates: start: 2010
  22. L-LYSINE [Concomitant]
     Indication: NUTRITIONAL SUPPLEMENTATION
     Route: 048
  23. TRIPLE PROBIOTIC [Concomitant]
     Indication: PRODUCT USED FOR UNKNOWN INDICATION
     Route: 048

REACTIONS (17)
  - Respiratory tract infection [Recovering/Resolving]
  - Skin burning sensation [Recovered/Resolved]
  - Rash macular [Recovered/Resolved]
  - Neuralgia [Recovering/Resolving]
  - Infusion site pruritus [Recovered/Resolved]
  - Infusion site erythema [Recovered/Resolved]
  - Infusion site pain [Recovered/Resolved]
  - Injection site urticaria [Recovered/Resolved]
  - Limb discomfort [Not Recovered/Not Resolved]
  - Muscle spasms [Not Recovered/Not Resolved]
  - Headache [Recovering/Resolving]
  - Ear pain [Recovering/Resolving]
  - Oropharyngeal pain [Recovering/Resolving]
  - Fatigue [Not Recovered/Not Resolved]
  - Weight decreased [Recovered/Resolved]
  - Weight increased [Recovered/Resolved]
  - Chills [Unknown]
